FAERS Safety Report 13487984 (Version 1)
Quarter: 2017Q2

REPORT INFORMATION
  Report Type: Spontaneous
  Country: US (occurrence: US)
  Receive Date: 20170426
  Receipt Date: 20170426
  Transmission Date: 20170830
  Serious: No
  Sender: FDA-Public Use
  Company Number: US-ALKERMES INC.-ALK-2015-001284

PATIENT
  Age: 24 Year
  Sex: Female
  Weight: 58.96 kg

DRUGS (3)
  1. VIVITROL [Suspect]
     Active Substance: NALTREXONE
     Indication: DRUG USE DISORDER
     Dosage: 380 MG, QMO
     Route: 030
     Dates: start: 20151027
  2. ANTIDEPRESSANTS [Concomitant]
     Active Substance: UNSPECIFIED INGREDIENT
     Indication: DEPRESSION
     Dosage: UNK
     Route: 065
  3. ANTIDEPRESSANTS [Concomitant]
     Active Substance: UNSPECIFIED INGREDIENT
     Indication: ANXIETY

REACTIONS (4)
  - Drug use disorder [Recovered/Resolved]
  - Drug ineffective [Unknown]
  - Insomnia [Unknown]
  - Euphoric mood [Recovered/Resolved]

NARRATIVE: CASE EVENT DATE: 201510
